FAERS Safety Report 9240505 (Version 1)
Quarter: 2013Q1

REPORT INFORMATION
  Report Type: Spontaneous
  Country: US (occurrence: None)
  Receive Date: 20121120
  Receipt Date: 20121120
  Transmission Date: 20140127
  Serious: No
  Sender: FDA-Public Use
  Company Number: 1000037920

PATIENT
  Sex: Female

DRUGS (3)
  1. VIIBRYD (VILAZODONE) (TABLETS) [Suspect]
     Dosage: 40 MG (40 MG, 1 IN 1 D), ORAL
     Route: 048
  2. WELLBUTRIN (BUPROPION HYDROCHLORIDE) (BUPROPION HYDROCHLORIDE) [Concomitant]
  3. ADDERALL (DEXTROAMPHETAMINE, AMPHETAMINE) (DEXTROAMPHETAMINE, AMPHETAMINE) [Concomitant]

REACTIONS (2)
  - Contusion [None]
  - Dry mouth [None]
